FAERS Safety Report 16396865 (Version 2)
Quarter: 2019Q3

REPORT INFORMATION
  Report Type: Report from Study
  Country: AU (occurrence: AU)
  Receive Date: 20190606
  Receipt Date: 20190806
  Transmission Date: 20191004
  Serious: Yes (Hospitalization)
  Sender: FDA-Public Use
  Company Number: AU-BIOGEN-2019BI00746622

PATIENT
  Age: 63 Year
  Sex: Female

DRUGS (1)
  1. TYSABRI [Suspect]
     Active Substance: NATALIZUMAB
     Indication: MULTIPLE SCLEROSIS
     Dosage: INFUSED OVER 1 HOUR
     Route: 042
     Dates: start: 20160701

REACTIONS (8)
  - Pneumonia [Unknown]
  - Headache [Recovered/Resolved]
  - Haemoptysis [Unknown]
  - Malaise [Unknown]
  - C-reactive protein increased [Unknown]
  - Product dose omission [Recovered/Resolved]
  - Chest pain [Recovered/Resolved]
  - Cough [Not Recovered/Not Resolved]

NARRATIVE: CASE EVENT DATE: 2019
